FAERS Safety Report 16133804 (Version 1)
Quarter: 2019Q1

REPORT INFORMATION
  Report Type: Spontaneous
  Country: FR (occurrence: FR)
  Receive Date: 20190329
  Receipt Date: 20190329
  Transmission Date: 20190418
  Serious: Yes (Hospitalization)
  Sender: FDA-Public Use
  Company Number: FR-ACCORD-116633

PATIENT
  Age: 88 Year
  Sex: Male
  Weight: 70.5 kg

DRUGS (6)
  1. CLOZAPINE. [Suspect]
     Active Substance: CLOZAPINE
     Indication: HALLUCINATION
     Route: 048
     Dates: start: 201811, end: 201811
  2. FUROSEMIDE. [Concomitant]
     Active Substance: FUROSEMIDE
  3. ELISOR [Concomitant]
     Active Substance: PRAVASTATIN SODIUM
  4. COUMADINE [Concomitant]
     Active Substance: WARFARIN SODIUM
  5. ALDACTONE [Concomitant]
     Active Substance: SPIRONOLACTONE
  6. CLOPIDOGREL [Concomitant]
     Active Substance: CLOPIDOGREL BISULFATE

REACTIONS (2)
  - Off label use [Unknown]
  - Fall [Unknown]

NARRATIVE: CASE EVENT DATE: 201811
